FAERS Safety Report 24343540 (Version 1)
Quarter: 2024Q3

REPORT INFORMATION
  Report Type: Spontaneous
  Country: US (occurrence: None)
  Receive Date: 20240919
  Receipt Date: 20240919
  Transmission Date: 20241017
  Serious: Yes (Death)
  Sender: Public
  Company Number: None

PATIENT
  Age: 84 Year
  Sex: Female
  Weight: 83.25 kg

DRUGS (1)
  1. FOSAMAX [Suspect]
     Active Substance: ALENDRONATE SODIUM
     Indication: Osteoporosis
     Dates: start: 20240425

REACTIONS (5)
  - Dyspepsia [None]
  - Abdominal discomfort [None]
  - Insomnia [None]
  - Fall [None]
  - Myocardial infarction [None]

NARRATIVE: CASE EVENT DATE: 20240425
